FAERS Safety Report 13781475 (Version 3)
Quarter: 2018Q1

REPORT INFORMATION
  Report Type: Report from Study
  Country: GB (occurrence: GB)
  Receive Date: 20170724
  Receipt Date: 20180222
  Transmission Date: 20180508
  Serious: Yes (Hospitalization)
  Sender: FDA-Public Use
  Company Number: PHFR2017GB005669

PATIENT
  Age: 65 Year
  Sex: Female
  Weight: 97 kg

DRUGS (1)
  1. ENTRESTO [Suspect]
     Active Substance: SACUBITRIL\VALSARTAN
     Indication: CARDIAC FAILURE
     Dosage: 1 DF (97 MG SACUBITRIL/ 103 MG VALSARTAN), BID
     Route: 048
     Dates: start: 20170615

REACTIONS (12)
  - Cardiac failure congestive [Recovered/Resolved]
  - International normalised ratio increased [Unknown]
  - Blood creatinine increased [Unknown]
  - Pulmonary oedema [Recovered/Resolved]
  - Chronic obstructive pulmonary disease [Not Recovered/Not Resolved]
  - Joint swelling [Unknown]
  - Dyspnoea [Recovered/Resolved]
  - Weight increased [Not Recovered/Not Resolved]
  - Oedema peripheral [Recovered/Resolved]
  - Hypoxia [Recovered/Resolved]
  - Peripheral swelling [Unknown]
  - Lethargy [Not Recovered/Not Resolved]

NARRATIVE: CASE EVENT DATE: 20170712
